FAERS Safety Report 4830458-5 (Version None)
Quarter: 2005Q4

REPORT INFORMATION
  Report Type: 
  Country: None (occurrence: None)
  Receive Date: 20051117
  Receipt Date: 20050920
  Transmission Date: 20060501
  Serious: Yes (Disabling)
  Sender: FDA-Public Use
  Company Number: US-ROCHE-418591

PATIENT
  Age: 69 Year
  Sex: Female
  Weight: 108.9 kg

DRUGS (3)
  1. BONIVA [Suspect]
     Indication: OSTEOPOROSIS
     Route: 048
     Dates: start: 20050515, end: 20050915
  2. LASIX [Suspect]
     Indication: FLUID RETENTION
     Route: 048
     Dates: start: 20030615, end: 20050915
  3. PREDNISONE [Suspect]
     Indication: POLYMYALGIA RHEUMATICA
     Route: 048
     Dates: start: 20030615

REACTIONS (3)
  - ABASIA [None]
  - ASTHENIA [None]
  - FATIGUE [None]
